FAERS Safety Report 18092513 (Version 1)
Quarter: 2020Q3

REPORT INFORMATION
  Report Type: Spontaneous
  Country: US (occurrence: US)
  Receive Date: 20200730
  Receipt Date: 20200730
  Transmission Date: 20201103
  Serious: Yes (Other)
  Sender: FDA-Public Use
  Company Number: US-PFIZER INC-2020288953

PATIENT
  Age: 32 Year
  Sex: Male

DRUGS (7)
  1. RITUXIMAB. [Suspect]
     Active Substance: RITUXIMAB
     Indication: METASTASES TO THE MEDIASTINUM
     Dosage: UNK, CYCLIC (INFUSED ON DAY 1)
  2. PREDNISONE. [Concomitant]
     Active Substance: PREDNISONE
     Indication: METASTASES TO THE MEDIASTINUM
     Dosage: UNK, CYCLIC
     Route: 048
  3. ADRIAMYCIN [Concomitant]
     Active Substance: DOXORUBICIN HYDROCHLORIDE
     Indication: METASTASES TO THE MEDIASTINUM
     Dosage: UNK
  4. VINCRISTINE [Concomitant]
     Active Substance: VINCRISTINE
     Indication: METASTASES TO THE MEDIASTINUM
     Dosage: UNK, CYCLIC
  5. CYCLOPHOSPHAMIDE. [Concomitant]
     Active Substance: CYCLOPHOSPHAMIDE
     Indication: METASTASES TO THE MEDIASTINUM
     Dosage: UNK, CYCLIC
  6. NEULASTA [Concomitant]
     Active Substance: PEGFILGRASTIM
     Indication: NEUTROPHIL COUNT ABNORMAL
     Dosage: UNK, CYCLIC
  7. ETOPOSIDE. [Concomitant]
     Active Substance: ETOPOSIDE
     Indication: METASTASES TO THE MEDIASTINUM
     Dosage: UNK, CYCLIC

REACTIONS (1)
  - Capillary leak syndrome [Recovered/Resolved]
